FAERS Safety Report 8832355 (Version 2)
Quarter: 2013Q2

REPORT INFORMATION
  Report Type: Spontaneous
  Country: US (occurrence: US)
  Receive Date: 20121009
  Receipt Date: 20130628
  Transmission Date: 20140414
  Serious: Yes (Life-Threatening, Other)
  Sender: FDA-Public Use
  Company Number: CHPA2012US021261

PATIENT
  Age: 65 Year
  Sex: Female

DRUGS (3)
  1. CONTROL PLP [Suspect]
     Indication: SMOKING CESSATION THERAPY
     Dosage: 21 MG, UNK
     Route: 062
  2. CONTROL PLP [Suspect]
     Dosage: UNK
  3. SPIRIVA ^BOEHRINGER INGELHEIM^ [Concomitant]
     Dosage: UNK, UNK

REACTIONS (2)
  - Feeling abnormal [Recovered/Resolved]
  - Emphysema [Not Recovered/Not Resolved]
